FAERS Safety Report 4990171-0 (Version None)
Quarter: 2006Q2

REPORT INFORMATION
  Report Type: 
  Country: None (occurrence: None)
  Receive Date: 20060503
  Receipt Date: 20051209
  Transmission Date: 20061013
  Serious: Yes (Death, Hospitalization, Disabling)
  Sender: FDA-Public Use
  Company Number: US-MERCK-0512USA01999

PATIENT
  Age: 52 Year
  Sex: Male
  Weight: 84 kg

DRUGS (3)
  1. VIOXX [Suspect]
     Indication: NERVE COMPRESSION
     Route: 048
     Dates: start: 20030101
  2. VIOXX [Suspect]
     Indication: SHOULDER PAIN
     Route: 048
     Dates: start: 20030101
  3. ADVIL [Concomitant]
     Route: 065

REACTIONS (10)
  - CHEST PAIN [None]
  - CHRONIC OBSTRUCTIVE PULMONARY DISEASE [None]
  - DYSPNOEA [None]
  - HAEMOPTYSIS [None]
  - HEPATITIS C [None]
  - METASTASES TO BONE [None]
  - NERVE COMPRESSION [None]
  - NON-SMALL CELL LUNG CANCER [None]
  - OVERDOSE [None]
  - SHOULDER PAIN [None]
